FAERS Safety Report 5330173-8 (Version None)
Quarter: 2007Q2

REPORT INFORMATION
  Report Type: 
  Country: None (occurrence: None)
  Receive Date: 20070521
  Receipt Date: 20070510
  Transmission Date: 20071010
  Serious: No
  Sender: FDA-Public Use
  Company Number: US-ELI_LILLY_AND_COMPANY-US200705001616

PATIENT
  Sex: Male

DRUGS (2)
  1. FORTEO [Suspect]
  2. CARDIZEM [Concomitant]
     Indication: CARDIAC DISORDER

REACTIONS (1)
  - DIZZINESS [None]
